FAERS Safety Report 24941339 (Version 2)
Quarter: 2025Q1

REPORT INFORMATION
  Report Type: Spontaneous
  Country: IN (occurrence: IN)
  Receive Date: 20250207
  Receipt Date: 20250225
  Transmission Date: 20250409
  Serious: Yes (Hospitalization, Other)
  Sender: RANBAXY
  Company Number: IN-SUN PHARMACEUTICAL INDUSTRIES LTD.-2025R1-492681

PATIENT
  Age: 4 Decade
  Sex: Female
  Weight: 40 kg

DRUGS (5)
  1. ISONIAZID [Interacting]
     Active Substance: ISONIAZID
     Indication: Pulmonary tuberculosis
     Route: 065
  2. PHENYTOIN [Interacting]
     Active Substance: PHENYTOIN
     Indication: Seizure
     Route: 065
  3. PYRAZINAMIDE [Suspect]
     Active Substance: PYRAZINAMIDE
     Indication: Pulmonary tuberculosis
     Route: 065
  4. RIFAMPIN [Suspect]
     Active Substance: RIFAMPIN
     Indication: Pulmonary tuberculosis
     Route: 065
  5. ETHAMBUTOL [Suspect]
     Active Substance: ETHAMBUTOL HYDROCHLORIDE
     Indication: Pulmonary tuberculosis
     Route: 065

REACTIONS (8)
  - Toxicity to various agents [Unknown]
  - Drug interaction [Unknown]
  - Drug level increased [Recovered/Resolved]
  - Balance disorder [Recovered/Resolved]
  - Psychotic disorder [Recovered/Resolved]
  - Nystagmus [Recovered/Resolved]
  - Hyperreflexia [Recovered/Resolved]
  - Stupor [Recovered/Resolved]
